FAERS Safety Report 20097914 (Version 1)
Quarter: 2021Q4

REPORT INFORMATION
  Report Type: Spontaneous
  Country: ES (occurrence: ES)
  Receive Date: 20211122
  Receipt Date: 20211122
  Transmission Date: 20220303
  Serious: Yes (Hospitalization)
  Sender: FDA-Public Use
  Company Number: ES-BAYER-2021A249702

PATIENT
  Sex: Female

DRUGS (1)
  1. ILOPROST [Suspect]
     Active Substance: ILOPROST
     Indication: Product used for unknown indication

REACTIONS (2)
  - Hospitalisation [Unknown]
  - Drug dose omission by device [Unknown]

NARRATIVE: CASE EVENT DATE: 20200101
